FAERS Safety Report 22144434 (Version 1)
Quarter: 2023Q1

REPORT INFORMATION
  Report Type: Spontaneous
  Country: IT (occurrence: IT)
  Receive Date: 20230328
  Receipt Date: 20230328
  Transmission Date: 20230418
  Serious: Yes (Hospitalization, Other)
  Sender: FDA-Public Use
  Company Number: IT-MLMSERVICE-20230310-4160623-1

PATIENT
  Age: 59 Year
  Sex: Female
  Weight: 60 kg

DRUGS (12)
  1. GEMCITABINE [Suspect]
     Active Substance: GEMCITABINE
     Indication: Pancreatic carcinoma stage IV
     Dosage: DAYS 1, 8 AND 15 OF A 28-D CYCLE
     Route: 065
     Dates: start: 2020
  2. GEMCITABINE [Suspect]
     Active Substance: GEMCITABINE
     Indication: Pancreatic carcinoma
  3. OXALIPLATIN [Suspect]
     Active Substance: OXALIPLATIN
     Indication: Pancreatic carcinoma stage IV
     Dosage: 85 MILLIGRAM/SQ. METER
     Route: 065
     Dates: start: 202102
  4. OXALIPLATIN [Suspect]
     Active Substance: OXALIPLATIN
     Indication: Pancreatic carcinoma
  5. FLUOROURACIL [Concomitant]
     Active Substance: FLUOROURACIL
     Indication: Pancreatic carcinoma
     Dosage: CONTINUOUS INFUSION FOR 44 H
     Route: 065
     Dates: start: 202102
  6. FLUOROURACIL [Concomitant]
     Active Substance: FLUOROURACIL
     Indication: Pancreatic carcinoma stage IV
  7. IRINOTECAN [Concomitant]
     Active Substance: IRINOTECAN
     Indication: Pancreatic carcinoma
     Dosage: 150 MILLIGRAM/SQ. METER
     Route: 065
     Dates: start: 202102
  8. IRINOTECAN [Concomitant]
     Active Substance: IRINOTECAN
     Indication: Pancreatic carcinoma stage IV
  9. PACLITAXEL [Concomitant]
     Active Substance: PACLITAXEL
     Indication: Pancreatic carcinoma
     Dosage: DAYS 1, 8 AND 15 OF A 28-D CYCLE
     Route: 065
     Dates: start: 2020
  10. PACLITAXEL [Concomitant]
     Active Substance: PACLITAXEL
     Indication: Pancreatic carcinoma stage IV
  11. FOLIC ACID [Concomitant]
     Active Substance: FOLIC ACID
     Indication: Pancreatic carcinoma
     Dosage: 200 MILLIGRAM/SQ. METER
     Route: 065
     Dates: start: 202102
  12. FOLIC ACID [Concomitant]
     Active Substance: FOLIC ACID
     Indication: Pancreatic carcinoma stage IV

REACTIONS (4)
  - Pelvic venous thrombosis [Unknown]
  - Deep vein thrombosis [Unknown]
  - Pulmonary embolism [Unknown]
  - Atrial thrombosis [Unknown]

NARRATIVE: CASE EVENT DATE: 20210101
